FAERS Safety Report 9417002 (Version 1)
Quarter: 2013Q3

REPORT INFORMATION
  Report Type: Spontaneous
  Country: US (occurrence: None)
  Receive Date: 20130722
  Receipt Date: 20130722
  Transmission Date: 20140515
  Serious: Yes (Other)
  Sender: FDA-Public Use
  Company Number: 2013P1012097

PATIENT
  Age: 52 Year
  Sex: Female

DRUGS (3)
  1. OXTELLAR XR [Suspect]
     Indication: PARTIAL SEIZURES
     Route: 048
     Dates: start: 20130621, end: 201306
  2. OXCARBAZEPINE [Suspect]
     Indication: PARTIAL SEIZURES
     Dates: end: 20130620
  3. SIMVASTATIN [Concomitant]

REACTIONS (7)
  - Partial seizures [None]
  - Fatigue [None]
  - Feeling abnormal [None]
  - Head discomfort [None]
  - Paraesthesia [None]
  - Tremor [None]
  - Drug ineffective [None]
